FAERS Safety Report 10798072 (Version 3)
Quarter: 2015Q1

REPORT INFORMATION
  Report Type: Spontaneous
  Country: US (occurrence: US)
  Receive Date: 20150216
  Receipt Date: 20150309
  Transmission Date: 20150721
  Serious: No
  Sender: FDA-Public Use
  Company Number: US-PFIZER INC-2015055040

PATIENT
  Age: 4 Year
  Sex: Male
  Weight: 24 kg

DRUGS (4)
  1. MOTRIN [Concomitant]
     Active Substance: IBUPROFEN
     Indication: PYREXIA
     Dosage: UNK
     Dates: start: 20150207, end: 20150210
  2. TYLENOL [Concomitant]
     Active Substance: ACETAMINOPHEN
     Indication: PYREXIA
     Dosage: UNK
     Dates: start: 20150207, end: 20150207
  3. CHILDRENS ADVIL [Suspect]
     Active Substance: IBUPROFEN
     Indication: PYREXIA
     Dosage: 10 ML TWICE A DAY
     Route: 048
     Dates: start: 20150207, end: 20150207
  4. CHILDRENS ADVIL [Suspect]
     Active Substance: IBUPROFEN
     Dosage: 10 MG TWICE A DAY
     Route: 048
     Dates: start: 20150207, end: 20150207

REACTIONS (1)
  - Vomiting [Recovered/Resolved]

NARRATIVE: CASE EVENT DATE: 20150207
